FAERS Safety Report 5663754-2 (Version None)
Quarter: 2008Q1

REPORT INFORMATION
  Report Type: 
  Country: None (occurrence: None)
  Receive Date: 20080311
  Receipt Date: 20080225
  Transmission Date: 20080703
  Serious: Yes (Life-Threatening)
  Sender: FDA-Public Use
  Company Number: M7002-00645-CLI-US

PATIENT
  Age: 69 Year
  Sex: Male
  Weight: 65 kg

DRUGS (22)
  1. ONTAK [Suspect]
     Indication: T-CELL LYMPHOMA
     Dosage: 1206 MCG, 2 IN 21 D, INTRAVENOUS INFUSION
     Route: 042
     Dates: start: 20070917
  2. CYCLOPHOSPHAMIDE [Suspect]
     Indication: T-CELL LYMPHOMA
     Dosage: 1357 MG, 1 IN 21 D, INTRAVENOUS INFUSION
     Route: 042
     Dates: start: 20070919
  3. DOXORUBICIN HCL [Suspect]
     Indication: T-CELL LYMPHOMA
     Dosage: 91 MG, 1 IN 21 D, INTRAVENOUS INFUSION
     Route: 042
     Dates: start: 20070919
  4. VINCRISTINE [Concomitant]
  5. PREDNISONE TAB [Concomitant]
  6. NEULASTA [Concomitant]
  7. PLAVIX [Concomitant]
  8. TOPROL-XL [Concomitant]
  9. ASPIRIN TAB [Concomitant]
  10. CRESTOR [Concomitant]
  11. MULTIVITAMIN [Concomitant]
  12. COMPAZINE (PROCHLORPERAZINE EDISYLATE) [Concomitant]
  13. SENNA (SENNA) [Concomitant]
  14. ZOFRAN [Concomitant]
  15. NYSTATIN [Concomitant]
  16. PROTONIX [Concomitant]
  17. ATIVAN [Concomitant]
  18. CHLORPHENIRAMINE-HYDROCODONE (CHLORPHENAMINE) [Concomitant]
  19. MARINOL [Concomitant]
  20. FLUCANOZOLE (FLUCONAZOLE) [Concomitant]
  21. LEXAPRO [Concomitant]
  22. MYCELEX [Concomitant]

REACTIONS (5)
  - DYSPNOEA [None]
  - FATIGUE [None]
  - LEUKOPENIA [None]
  - NEUTROPENIA [None]
  - THROMBOCYTOPENIA [None]
